FAERS Safety Report 18526013 (Version 2)
Quarter: 2020Q4

REPORT INFORMATION
  Report Type: Spontaneous
  Country: US (occurrence: US)
  Receive Date: 20201120
  Receipt Date: 20201211
  Transmission Date: 20210114
  Serious: Yes (Other)
  Sender: FDA-Public Use
  Company Number: US-ASTRAZENECA-2020SF51421

PATIENT
  Sex: Male
  Weight: 59.9 kg

DRUGS (6)
  1. SEROQUEL [Suspect]
     Active Substance: QUETIAPINE FUMARATE
     Indication: SLEEP DISORDER
     Route: 048
  2. SEROQUEL [Suspect]
     Active Substance: QUETIAPINE FUMARATE
     Indication: SLEEP DISORDER
     Dosage: 400.0MG UNKNOWN
     Route: 048
  3. SEROQUEL [Suspect]
     Active Substance: QUETIAPINE FUMARATE
     Indication: SLEEP DISORDER
     Dosage: TAKE 3 OR 4 TABLETS UNKNOWN
     Route: 048
  4. SEROQUEL [Suspect]
     Active Substance: QUETIAPINE FUMARATE
     Indication: SLEEP DISORDER
     Dosage: 200.0MG UNKNOWN
     Route: 048
  5. SEROQUEL [Suspect]
     Active Substance: QUETIAPINE FUMARATE
     Indication: SLEEP DISORDER
     Dosage: 200.0MG UNKNOWN
     Route: 048
  6. SEROQUEL XR [Suspect]
     Active Substance: QUETIAPINE FUMARATE
     Indication: SLEEP DISORDER
     Route: 048

REACTIONS (32)
  - Dementia [Unknown]
  - Speech disorder [Unknown]
  - Ill-defined disorder [Unknown]
  - Appetite disorder [Unknown]
  - Restlessness [Unknown]
  - Suicidal ideation [Unknown]
  - Depression [Unknown]
  - Psychotic disorder [Unknown]
  - Memory impairment [Unknown]
  - Insomnia [Unknown]
  - Drug ineffective [Unknown]
  - Weight fluctuation [Unknown]
  - Hypovitaminosis [Unknown]
  - Pharyngeal swelling [Unknown]
  - Panic attack [Unknown]
  - Illness [Unknown]
  - Weight increased [Unknown]
  - Irritability [Unknown]
  - Burn oesophageal [Unknown]
  - Choking sensation [Unknown]
  - Anxiety [Unknown]
  - Decreased appetite [Unknown]
  - Quality of life decreased [Unknown]
  - Somnolence [Unknown]
  - Product use complaint [Unknown]
  - Pancreatitis [Unknown]
  - Agitation [Unknown]
  - Weight decreased [Unknown]
  - Throat irritation [Unknown]
  - Laziness [Unknown]
  - Withdrawal syndrome [Unknown]
  - Mental disorder [Unknown]
